FAERS Safety Report 9829393 (Version 1)
Quarter: 2014Q1

REPORT INFORMATION
  Report Type: Spontaneous
  Country: US (occurrence: US)
  Receive Date: 20140120
  Receipt Date: 20140120
  Transmission Date: 20141002
  Serious: Yes (Hospitalization)
  Sender: FDA-Public Use
  Company Number: US-BIOGENIDEC-2014BI002372

PATIENT
  Age: 61 Year
  Sex: Female

DRUGS (2)
  1. AVONEX [Suspect]
     Indication: MULTIPLE SCLEROSIS
     Route: 030
     Dates: start: 20060512
  2. IBUPROFEN [Concomitant]

REACTIONS (3)
  - Gastric haemorrhage [Recovered/Resolved]
  - Shoulder operation [Recovered/Resolved]
  - Influenza like illness [Recovered/Resolved]
